FAERS Safety Report 8607102 (Version 2)
Quarter: 2014Q1

REPORT INFORMATION
  Report Type: Spontaneous
  Country: US (occurrence: US)
  Receive Date: 20120611
  Receipt Date: 20140128
  Transmission Date: 20141002
  Serious: Yes (Other)
  Sender: FDA-Public Use
  Company Number: US-ASTRAZENECA-2012SE34705

PATIENT
  Age: 56 Year
  Sex: Female
  Weight: 63.5 kg

DRUGS (16)
  1. NEXIUM [Suspect]
     Indication: GASTROOESOPHAGEAL REFLUX DISEASE
     Route: 048
     Dates: start: 2010
  2. NEXIUM [Suspect]
     Indication: GASTROOESOPHAGEAL REFLUX DISEASE
     Route: 048
     Dates: start: 20061107
  3. TUMS [Concomitant]
  4. ROLAIDS [Concomitant]
     Dosage: 2 TIMES A DAY
  5. ALKA SELTZER [Concomitant]
     Dosage: 2 TIMES A DAY
     Dates: start: 2006
  6. METRONIDAZOLE [Concomitant]
     Dates: start: 20090702
  7. WELLBUTRIN [Concomitant]
     Dates: start: 20090725
  8. OMEPRAZOLE [Concomitant]
     Dates: start: 20070413
  9. LEXAPRO [Concomitant]
     Dates: start: 20070406
  10. PRILOSEC OTC [Concomitant]
     Dates: start: 20061013
  11. SEROQUEL [Concomitant]
     Dates: start: 20061013
  12. HYDROCHLOROTHIAZID [Concomitant]
     Dates: start: 20070910
  13. NIFEDIPINE [Concomitant]
     Dates: start: 20070310
  14. PREDNISONE [Concomitant]
     Dates: start: 20070313
  15. LORATADINE [Concomitant]
     Dates: start: 20070313
  16. ACCOLATE [Concomitant]
     Dates: start: 20070328

REACTIONS (6)
  - Hip fracture [Unknown]
  - Osteoporosis [Unknown]
  - Multiple fractures [Unknown]
  - Lower limb fracture [Unknown]
  - Calcium deficiency [Unknown]
  - Depression [Unknown]
